FAERS Safety Report 20725786 (Version 1)
Quarter: 2022Q2

REPORT INFORMATION
  Report Type: Spontaneous
  Country: US (occurrence: US)
  Receive Date: 20220419
  Receipt Date: 20220419
  Transmission Date: 20220721
  Serious: No
  Sender: FDA-Public Use
  Company Number: US-SA-SAC20220413001621

PATIENT
  Age: 50 Year
  Sex: Female

DRUGS (5)
  1. DUPIXENT [Suspect]
     Active Substance: DUPILUMAB
     Indication: Dermatitis atopic
     Dosage: 300 MG/2 ML, QOW
     Route: 058
     Dates: start: 20210121
  2. VITAMIN C [Concomitant]
     Active Substance: ASCORBIC ACID
  3. ZINC ACETATE [Concomitant]
     Active Substance: ZINC ACETATE
  4. METHYLPREDNISOLONE [Concomitant]
     Active Substance: METHYLPREDNISOLONE
  5. VITAMIN D NOS [Concomitant]
     Active Substance: VITAMIN D NOS

REACTIONS (2)
  - Infection [Unknown]
  - Injection site reaction [Unknown]
